FAERS Safety Report 4394462-6 (Version None)
Quarter: 2004Q3

REPORT INFORMATION
  Report Type: 
  Country: None (occurrence: None)
  Receive Date: 20040709
  Receipt Date: 20040709
  Transmission Date: 20050211
  Serious: No
  Sender: FDA-Public Use
  Company Number: None

PATIENT
  Age: 40 Year
  Sex: Female
  Weight: 107.5025 kg

DRUGS (2)
  1. DEMEROL [Suspect]
     Indication: BACK PAIN
     Dosage: 50 MG 5/DAY
     Dates: start: 20040621, end: 20040629
  2. DEMEROL [Suspect]
     Indication: RIB FRACTURE
     Dosage: 50 MG 5/DAY
     Dates: start: 20040621, end: 20040629

REACTIONS (2)
  - DRUG EFFECT DECREASED [None]
  - PHARMACEUTICAL PRODUCT COMPLAINT [None]
